FAERS Safety Report 6540028-9 (Version None)
Quarter: 2010Q1

REPORT INFORMATION
  Report Type: 
  Country: None (occurrence: None)
  Receive Date: 20100115
  Receipt Date: 20100106
  Transmission Date: 20100710
  Serious: Yes (Death)
  Sender: FDA-Public Use
  Company Number: US-BAXTER-2009BH019315

PATIENT
  Age: 63 Year
  Sex: Female

DRUGS (5)
  1. DIANEAL [Suspect]
     Indication: PERITONEAL DIALYSIS
     Route: 033
     Dates: start: 20080512, end: 20091115
  2. DIANEAL [Suspect]
     Route: 033
     Dates: start: 20080512, end: 20091115
  3. DIANEAL [Suspect]
     Indication: PERITONEAL DIALYSIS
     Route: 033
     Dates: start: 20070916, end: 20080511
  4. DIANEAL [Suspect]
     Route: 033
     Dates: start: 20070916, end: 20080511
  5. EPOGEN [Concomitant]
     Indication: DRUG USE FOR UNKNOWN INDICATION
     Route: 065
     Dates: end: 20091116

REACTIONS (1)
  - CARDIAC ARREST [None]
